FAERS Safety Report 9299089 (Version 2)
Quarter: 2013Q2

REPORT INFORMATION
  Report Type: Spontaneous
  Country: US (occurrence: US)
  Receive Date: 20130520
  Receipt Date: 20130617
  Transmission Date: 20140414
  Serious: No
  Sender: FDA-Public Use
  Company Number: US-PFIZER INC-2013151397

PATIENT
  Age: 52 Year
  Sex: Female

DRUGS (13)
  1. GEODON [Suspect]
     Dosage: UNK
  2. DIAZEPAM [Suspect]
     Dosage: UNK
  3. CLINDAMYCIN [Suspect]
     Dosage: UNK
  4. CARVEDILOL [Suspect]
     Dosage: UNK
  5. LOSARTAN [Suspect]
     Dosage: UNK
  6. MOBIC [Suspect]
     Dosage: UNK
  7. SEROQUEL [Suspect]
     Dosage: UNK
  8. TOPAMAX [Suspect]
     Dosage: UNK
  9. ZESTORETIC [Suspect]
     Dosage: UNK
  10. ZESTRIL [Suspect]
     Dosage: UNK
  11. ZIAC [Suspect]
     Dosage: UNK
  12. ABILIFY [Suspect]
     Dosage: UNK
  13. PAXIL [Suspect]
     Dosage: UNK

REACTIONS (1)
  - Drug hypersensitivity [Unknown]
